FAERS Safety Report 9291789 (Version 1)
Quarter: 2013Q2

REPORT INFORMATION
  Report Type: Spontaneous
  Country: GB (occurrence: GB)
  Receive Date: 20130516
  Receipt Date: 20130516
  Transmission Date: 20140414
  Serious: Yes (Other)
  Sender: FDA-Public Use
  Company Number: GB-RANBAXY-2013R1-68759

PATIENT
  Age: 72 Year
  Sex: Male
  Weight: 83 kg

DRUGS (3)
  1. ALLOPURINOL [Suspect]
     Indication: GOUT
     Dosage: 300 MG, QD
     Route: 048
     Dates: start: 201207
  2. AMOXICILLIN [Interacting]
     Indication: TOOTH INFECTION
     Dosage: 500 MG, TID
     Route: 048
     Dates: start: 20130410, end: 20130412
  3. ASPIRIN [Concomitant]
     Indication: HEART RATE IRREGULAR
     Dosage: 75 MG, QD
     Route: 048
     Dates: start: 201201

REACTIONS (3)
  - Gout [Recovered/Resolved]
  - Inhibitory drug interaction [Unknown]
  - Pain [Recovered/Resolved]
